FAERS Safety Report 6965647-7 (Version None)
Quarter: 2010Q3

REPORT INFORMATION
  Report Type: 
  Country: None (occurrence: None)
  Receive Date: 20100903
  Receipt Date: 20100803
  Transmission Date: 20110219
  Serious: No
  Sender: FDA-Public Use
  Company Number: US-BAYER-201019279BCC

PATIENT
  Age: 75 Year
  Sex: Female
  Weight: 73 kg

DRUGS (3)
  1. ALEVE (CAPLET) [Suspect]
     Indication: BACK PAIN
     Dosage: UNIT DOSE: 220 MG
     Route: 048
  2. TYLENOL W/ CODEINE [Concomitant]
     Indication: BACK PAIN
     Route: 048
  3. LIPITOR [Concomitant]
     Route: 065

REACTIONS (1)
  - BACK PAIN [None]
